FAERS Safety Report 23370104 (Version 2)
Quarter: 2024Q1

REPORT INFORMATION
  Report Type: Spontaneous
  Country: US (occurrence: US)
  Receive Date: 20240105
  Receipt Date: 20240214
  Transmission Date: 20240410
  Serious: Yes (Other)
  Sender: FDA-Public Use
  Company Number: US-BRISTOL-MYERS SQUIBB COMPANY-2024-000491

PATIENT
  Age: 62 Year
  Sex: Female
  Weight: 83.91 kg

DRUGS (2)
  1. POMALYST [Interacting]
     Active Substance: POMALIDOMIDE
     Indication: Plasma cell myeloma
     Dosage: 3WKSON,1WKOFF (3 WEEKS ON, 1 WEEK OFF)
     Route: 048
  2. CIPROFLOXACIN [Interacting]
     Active Substance: CIPROFLOXACIN
     Indication: Product used for unknown indication

REACTIONS (2)
  - Adverse event [Unknown]
  - Drug interaction [Unknown]
